FAERS Safety Report 4830510-4 (Version None)
Quarter: 2005Q4

REPORT INFORMATION
  Report Type: 
  Country: None (occurrence: None)
  Receive Date: 20051114
  Receipt Date: 20051102
  Transmission Date: 20060501
  Serious: Yes (Hospitalization)
  Sender: FDA-Public Use
  Company Number: 219138

PATIENT
  Age: 53 Year
  Sex: Male

DRUGS (1)
  1. AVASTIN [Suspect]
     Indication: COLORECTAL CANCER METASTATIC
     Dosage: 400 MG
     Dates: end: 20051031

REACTIONS (5)
  - ABDOMINAL PAIN UPPER [None]
  - HAEMORRHAGE [None]
  - MALAISE [None]
  - NAUSEA [None]
  - THROMBOTIC THROMBOCYTOPENIC PURPURA [None]
